FAERS Safety Report 6898280-6 (Version None)
Quarter: 2010Q3

REPORT INFORMATION
  Report Type: 
  Country: None (occurrence: None)
  Receive Date: 20100802
  Receipt Date: 20070928
  Transmission Date: 20110219
  Serious: No
  Sender: FDA-Public Use
  Company Number: US-PFIZER INC-2007048558

PATIENT
  Sex: Male

DRUGS (2)
  1. LYRICA [Suspect]
     Dates: start: 20070101, end: 20070101
  2. ACTOS [Interacting]

REACTIONS (4)
  - DRUG INEFFECTIVE [None]
  - DRUG INTERACTION [None]
  - SEDATION [None]
  - WEIGHT INCREASED [None]
